FAERS Safety Report 7712394-X (Version None)
Quarter: 2011Q3

REPORT INFORMATION
  Report Type: 
  Country: None (occurrence: None)
  Receive Date: 20110826
  Receipt Date: 20110817
  Transmission Date: 20111222
  Serious: Yes (Death, Hospitalization)
  Sender: FDA-Public Use
  Company Number: DE-AMGEN-DEUCT2011041852

PATIENT
  Age: 66 Year
  Sex: Male

DRUGS (3)
  1. ETANERCEPT [Suspect]
     Indication: RHEUMATOID ARTHRITIS
     Dosage: 50 MG, WEEKLY
     Route: 058
     Dates: start: 20090501, end: 20091204
  2. TREXALL [Suspect]
     Dosage: ^25^UNK, UNK
     Route: 051
     Dates: start: 20080701
  3. PREDNISONE [Concomitant]
     Dosage: 5 MG, EVENING
     Dates: start: 20090505, end: 20100101

REACTIONS (1)
  - SMALL CELL LUNG CANCER STAGE UNSPECIFIED [None]
